FAERS Safety Report 14668490 (Version 1)
Quarter: 2018Q1

REPORT INFORMATION
  Report Type: Spontaneous
  Country: FR (occurrence: FR)
  Receive Date: 20180322
  Receipt Date: 20180322
  Transmission Date: 20180509
  Serious: Yes (Life-Threatening, Hospitalization)
  Sender: FDA-Public Use
  Company Number: FR-PFIZER INC-2018113517

PATIENT
  Age: 48 Year
  Sex: Male
  Weight: 63 kg

DRUGS (4)
  1. CIPROFLOXACINE ARROW [Interacting]
     Active Substance: CIPROFLOXACIN
     Indication: LUNG INFECTION
     Dosage: 500 MG, 1X/DAY
     Route: 048
     Dates: start: 20170807, end: 20170811
  2. ZITHROMAX [Suspect]
     Active Substance: AZITHROMYCIN DIHYDRATE
     Indication: LUNG INFECTION
     Dosage: 250 MG, 1X/DAY
     Route: 048
     Dates: start: 20170808, end: 20170811
  3. CEFTAZIDIME ARROW [Interacting]
     Active Substance: CEFTAZIDIME
     Dosage: 1 G, 1X/DAY
     Route: 042
     Dates: start: 20170807, end: 20170811
  4. PREVISCAN (FLUINDIONE) [Interacting]
     Active Substance: FLUINDIONE
     Indication: ATRIAL FIBRILLATION
     Dosage: 30 MG, 1X/DAY
     Route: 048
     Dates: end: 20170810

REACTIONS (3)
  - Drug interaction [Recovered/Resolved with Sequelae]
  - International normalised ratio increased [Recovered/Resolved]
  - Extradural haematoma [Recovered/Resolved with Sequelae]

NARRATIVE: CASE EVENT DATE: 20170810
